FAERS Safety Report 18462437 (Version 1)
Quarter: 2020Q4

REPORT INFORMATION
  Report Type: Spontaneous
  Country: US (occurrence: US)
  Receive Date: 20201103
  Receipt Date: 20201103
  Transmission Date: 20210114
  Serious: Yes (Hospitalization, Other)
  Sender: FDA-Public Use
  Company Number: None

PATIENT
  Sex: Male

DRUGS (12)
  1. HUMIRA [Suspect]
     Active Substance: ADALIMUMAB
     Indication: INTESTINAL FISTULA
     Dosage: OTHER FREQUENCY:Q14D;?
     Route: 058
     Dates: start: 20200730
  2. PROCHLORPER [Concomitant]
  3. HUMIRA [Suspect]
     Active Substance: ADALIMUMAB
     Indication: CROHN^S DISEASE
     Dosage: OTHER FREQUENCY:Q14D;?
     Route: 058
     Dates: start: 20200730
  4. DEXAMETHASON [Concomitant]
     Active Substance: DEXAMETHASONE
  5. ENOXAPARIN [Concomitant]
     Active Substance: ENOXAPARIN
  6. HYDROMORPHON [Concomitant]
     Active Substance: HYDROMORPHONE
  7. OMEPRQZOLE [Concomitant]
  8. CIPROFLOXACN [Concomitant]
     Active Substance: CIPROFLOXACIN
  9. HYDROCO/APAP [Concomitant]
     Active Substance: ACETAMINOPHEN\HYDROCODONE
  10. METRONIDAZOL [Concomitant]
     Active Substance: METRONIDAZOLE
  11. MORPHINE SUL [Concomitant]
     Active Substance: MORPHINE SULFATE
  12. TRAMADL/APAP [Concomitant]

REACTIONS (1)
  - Neoplasm malignant [None]
